FAERS Safety Report 26136040 (Version 1)
Quarter: 2025Q4

REPORT INFORMATION
  Report Type: Spontaneous
  Country: US (occurrence: None)
  Receive Date: 20251208
  Receipt Date: 20251208
  Transmission Date: 20260118
  Serious: No
  Sender: FDA-CTU
  Company Number: None

PATIENT
  Sex: Female

DRUGS (2)
  1. OPSUMIT [Suspect]
     Active Substance: MACITENTAN
     Indication: Pulmonary arterial hypertension
     Dosage: FREQUENCY : DAILY;
     Route: 048
     Dates: start: 20241011
  2. YUTREPIA (VOU) [Concomitant]

REACTIONS (5)
  - Gastrointestinal disorder [None]
  - Diarrhoea [None]
  - Headache [None]
  - Vision blurred [None]
  - Pneumonia [None]
